FAERS Safety Report 9996009 (Version 1)
Quarter: 2014Q1

REPORT INFORMATION
  Report Type: Spontaneous
  Country: US (occurrence: None)
  Receive Date: 20140310
  Receipt Date: 20140310
  Transmission Date: 20141002
  Serious: Yes (Disabling)
  Sender: FDA-Public Use
  Company Number: None

PATIENT
  Age: 70 Year
  Sex: Female
  Weight: 79.38 kg

DRUGS (14)
  1. ALBUTEROL SULFATE [Suspect]
     Indication: CHRONIC OBSTRUCTIVE PULMONARY DISEASE
     Dosage: NEBULIZER
     Dates: start: 20131002, end: 20131028
  2. ATENOLOL [Concomitant]
  3. LISENOPRIL [Concomitant]
  4. EFFEXOR [Concomitant]
  5. LEVYTHYROXIN [Concomitant]
  6. XANAX [Concomitant]
     Dosage: X
  7. NEBULIZER [Concomitant]
  8. PREDNISONE [Concomitant]
  9. ATENOLOL [Concomitant]
  10. LISENIPRIL [Concomitant]
  11. THYROXIN [Concomitant]
  12. CITROPHAM [Concomitant]
  13. PERCOCET [Concomitant]
  14. IBUPROFEN [Concomitant]

REACTIONS (2)
  - Dyspnoea [None]
  - Condition aggravated [None]
